FAERS Safety Report 6729884-9 (Version None)
Quarter: 2010Q2

REPORT INFORMATION
  Report Type: 
  Country: None (occurrence: None)
  Receive Date: 20100518
  Receipt Date: 20100507
  Transmission Date: 20101027
  Serious: Yes (Other)
  Sender: FDA-Public Use
  Company Number: FR-JNJFOC-20100404723

PATIENT
  Age: 37 Year
  Sex: Female
  Weight: 54 kg

DRUGS (9)
  1. REMICADE [Suspect]
     Indication: RHEUMATOID ARTHRITIS
     Route: 042
  2. REMICADE [Suspect]
     Route: 042
  3. REMICADE [Suspect]
     Route: 042
  4. REMICADE [Suspect]
     Route: 042
  5. METHOTREXATE [Concomitant]
     Indication: RHEUMATOID ARTHRITIS
  6. METHOTREXATE [Concomitant]
  7. SPECIAFOLDINE [Concomitant]
     Dosage: DOSE= 2 TABLETS TWICE A WEEK, 72 HOURS AFTER METHOTREXATE
  8. OXYCONTIN [Concomitant]
  9. OXYCODONE HCL [Concomitant]

REACTIONS (9)
  - ABDOMINAL PAIN [None]
  - ASPHYXIA [None]
  - CHEST DISCOMFORT [None]
  - DIARRHOEA [None]
  - DRUG INEFFECTIVE [None]
  - DYSPNOEA [None]
  - FEELING ABNORMAL [None]
  - INFUSION RELATED REACTION [None]
  - TACHYCARDIA [None]
